FAERS Safety Report 17545485 (Version 1)
Quarter: 2020Q1

REPORT INFORMATION
  Report Type: Spontaneous
  Country: US (occurrence: US)
  Receive Date: 20200315
  Receipt Date: 20200315
  Transmission Date: 20200409
  Serious: No
  Sender: FDA-Public Use
  Company Number: None

PATIENT
  Age: 26 Year
  Sex: Female
  Weight: 63 kg

DRUGS (1)
  1. STUDIO FIX FLUID SPF 15 [Suspect]
     Active Substance: OCTINOXATE\TITANIUM DIOXIDE
     Indication: PRODUCT USED FOR UNKNOWN INDICATION
     Dosage: ?          QUANTITY:1 USE;OTHER FREQUENCY:ONCE;?
     Route: 061
     Dates: start: 20200315, end: 20200315

REACTIONS (3)
  - Skin burning sensation [None]
  - Application site erythema [None]
  - Hypersensitivity [None]

NARRATIVE: CASE EVENT DATE: 20200315
